FAERS Safety Report 4533399-6 (Version None)
Quarter: 2004Q4

REPORT INFORMATION
  Report Type: 
  Country: None (occurrence: None)
  Receive Date: 20041210
  Receipt Date: 20041104
  Transmission Date: 20050328
  Serious: Yes (Disabling, Other)
  Sender: FDA-Public Use
  Company Number: 2004-00401

PATIENT
  Age: 63 Year
  Sex: Female

DRUGS (3)
  1. VELCADE [Suspect]
     Indication: MULTIPLE MYELOMA
  2. THALIDOMIDE (THALIDOMIDE) [Suspect]
     Dosage: 100.00 MG
     Dates: start: 20040224, end: 20040427
  3. VINCRISTINE [Suspect]
     Indication: MULTIPLE MYELOMA

REACTIONS (2)
  - DISEASE PROGRESSION [None]
  - HYPOAESTHESIA [None]
